FAERS Safety Report 5608311-9 (Version None)
Quarter: 2008Q1

REPORT INFORMATION
  Report Type: 
  Country: None (occurrence: None)
  Receive Date: 20080111
  Receipt Date: 20071026
  Transmission Date: 20080703
  Serious: Yes (Other)
  Sender: FDA-Public Use
  Company Number: HQWYE061401JUN05

PATIENT
  Age: 57 Year
  Sex: Female

DRUGS (4)
  1. PREMPRO [Suspect]
     Dates: start: 19980131, end: 19981001
  2. CYCRIN [Suspect]
  3. PREMARIN [Suspect]
     Dates: start: 19940426, end: 19980131
  4. PROVERA [Suspect]
     Dates: start: 19940426, end: 19980131

REACTIONS (1)
  - BREAST CANCER [None]
